FAERS Safety Report 9575146 (Version 1)
Quarter: 2013Q4

REPORT INFORMATION
  Report Type: Spontaneous
  Country: US (occurrence: US)
  Receive Date: 20131001
  Receipt Date: 20131001
  Transmission Date: 20140711
  Serious: Yes (Other)
  Sender: FDA-Public Use
  Company Number: PHHY2013US106788

PATIENT
  Age: 39 Year
  Sex: Female

DRUGS (5)
  1. DOXORUBICIN [Suspect]
     Indication: EWING^S SARCOMA
  2. ETOPOSIDE [Suspect]
     Indication: EWING^S SARCOMA
  3. IFOSFAMIDE [Suspect]
     Indication: EWING^S SARCOMA
  4. VINCRISTINE [Suspect]
     Indication: EWING^S SARCOMA
  5. CYCLOPHOSPHAMIDE [Suspect]
     Indication: EWING^S SARCOMA

REACTIONS (4)
  - Syncope [Unknown]
  - Febrile neutropenia [Unknown]
  - Diarrhoea [Unknown]
  - Anaemia [Unknown]
